FAERS Safety Report 16020396 (Version 3)
Quarter: 2019Q4

REPORT INFORMATION
  Report Type: Spontaneous
  Country: ES (occurrence: ES)
  Receive Date: 20190301
  Receipt Date: 20191120
  Transmission Date: 20200122
  Serious: Yes (Other)
  Sender: FDA-Public Use
  Company Number: ES-AUROBINDO-AUR-APL-2018-001345

PATIENT
  Age: 78 Year
  Sex: Female

DRUGS (2)
  1. IBANDRONIC ACID FILM COATED TABLETS [Suspect]
     Active Substance: IBANDRONIC ACID
     Indication: OSTEOPOROSIS
     Dosage: UNK
     Route: 048
  2. ALENDRONIC ACID  FILM-COATED TABLETS [Suspect]
     Active Substance: ALENDRONIC ACID
     Indication: OSTEOPOROSIS
     Dosage: UNK
     Route: 048

REACTIONS (6)
  - Osteonecrosis of jaw [Unknown]
  - Purulence [Unknown]
  - Pain [Unknown]
  - Bone swelling [Unknown]
  - Exposed bone in jaw [Unknown]
  - Osteomyelitis [Unknown]
